FAERS Safety Report 16131496 (Version 3)
Quarter: 2019Q4

REPORT INFORMATION
  Report Type: Report from Study
  Country: US (occurrence: US)
  Receive Date: 20190328
  Receipt Date: 20191227
  Transmission Date: 20200122
  Serious: Yes (Other)
  Sender: FDA-Public Use
  Company Number: US-ACTELION-A-NJ2019-184674

PATIENT
  Age: 68 Year
  Sex: Female

DRUGS (1)
  1. OPSUMIT [Suspect]
     Active Substance: MACITENTAN
     Indication: PULMONARY ARTERIAL HYPERTENSION
     Dosage: 10 MG, QD
     Route: 048
     Dates: start: 20181101

REACTIONS (8)
  - Mobility decreased [Unknown]
  - Ankle fracture [Unknown]
  - Pain in extremity [Unknown]
  - Malaise [Unknown]
  - Dyspnoea exertional [Unknown]
  - Fatigue [Unknown]
  - Road traffic accident [Unknown]
  - Dyspnoea [Unknown]

NARRATIVE: CASE EVENT DATE: 20181224
